FAERS Safety Report 21307561 (Version 1)
Quarter: 2022Q3

REPORT INFORMATION
  Report Type: Spontaneous
  Country: DE (occurrence: DE)
  Receive Date: 20220908
  Receipt Date: 20220908
  Transmission Date: 20221027
  Serious: Yes (Other)
  Sender: FDA-Public Use
  Company Number: DE-SA-SAC20220907000192

PATIENT
  Age: 64 Year
  Sex: Male

DRUGS (23)
  1. LEVOCETIRIZINE [Suspect]
     Active Substance: LEVOCETIRIZINE
     Indication: Pruritus
     Dates: start: 202111
  2. VIMPAT [Suspect]
     Active Substance: LACOSAMIDE
     Indication: Product used for unknown indication
     Dosage: UNK; 100MG AND 50MG STRENGTH#2 JUNK
     Dates: start: 20211117, end: 20220124
  3. PREGABALIN [Concomitant]
     Active Substance: PREGABALIN
  4. OLOPATADINE [Concomitant]
     Active Substance: OLOPATADINE
  5. PREGABALIN HENNIG [Concomitant]
  6. ROSUVASTATIN [Concomitant]
     Active Substance: ROSUVASTATIN
  7. URAPIDIL HYDROCHLORIDE [Concomitant]
     Active Substance: URAPIDIL HYDROCHLORIDE
  8. PRADAXA [Concomitant]
     Active Substance: DABIGATRAN ETEXILATE MESYLATE
  9. PRIMIDONE [Concomitant]
     Active Substance: PRIMIDONE
  10. RAMIPRIL [Concomitant]
     Active Substance: RAMIPRIL
  11. DEXA SINE SE [Concomitant]
  12. DESLORADERM [Concomitant]
  13. EBASTIN ARISTO [Concomitant]
  14. TORSEMIDE [Concomitant]
     Active Substance: TORSEMIDE
  15. HYDROCHLOROTHIAZIDE\RAMIPRIL [Concomitant]
     Active Substance: HYDROCHLOROTHIAZIDE\RAMIPRIL
  16. FOLIC ACID [Concomitant]
     Active Substance: FOLIC ACID
  17. VITAMIN B12 [Concomitant]
     Active Substance: CYANOCOBALAMIN
  18. COMIRNATY [Concomitant]
     Active Substance: TOZINAMERAN
  19. EBASTINE [Concomitant]
     Active Substance: EBASTINE
  20. FEXOFENADINE [Concomitant]
     Active Substance: FEXOFENADINE HYDROCHLORIDE
  21. PANTOPRAZOL CT [Concomitant]
  22. METAMIZOLE [Concomitant]
     Active Substance: METAMIZOLE
  23. PREGABALIN [Concomitant]
     Active Substance: PREGABALIN

REACTIONS (5)
  - Generalised tonic-clonic seizure [Unknown]
  - Hypersensitivity [Unknown]
  - Pruritus [Not Recovered/Not Resolved]
  - Constipation [Unknown]
  - Drug ineffective [Unknown]

NARRATIVE: CASE EVENT DATE: 20211101
